FAERS Safety Report 6503942-6 (Version None)
Quarter: 2009Q4

REPORT INFORMATION
  Report Type: 
  Country: None (occurrence: None)
  Receive Date: 20091216
  Receipt Date: 20091216
  Transmission Date: 20100525
  Serious: No
  Sender: FDA-Public Use
  Company Number: None

PATIENT
  Sex: Female
  Weight: 76.8 kg

DRUGS (1)
  1. TOPIRAMATE [Suspect]
     Indication: ESSENTIAL TREMOR
     Dosage: 125MG TWICE DAILY ORALLY
     Route: 048
     Dates: start: 20090518, end: 20090626

REACTIONS (4)
  - CONDITION AGGRAVATED [None]
  - NO THERAPEUTIC RESPONSE [None]
  - PRODUCT SUBSTITUTION ISSUE [None]
  - TREMOR [None]
